FAERS Safety Report 19687377 (Version 1)
Quarter: 2021Q3

REPORT INFORMATION
  Report Type: Spontaneous
  Country: US (occurrence: US)
  Receive Date: 20210812
  Receipt Date: 20210812
  Transmission Date: 20211014
  Serious: No
  Sender: FDA-Public Use
  Company Number: US-AMGEN-USASP2021121717

PATIENT
  Sex: Female

DRUGS (1)
  1. KANJINTI [Suspect]
     Active Substance: TRASTUZUMAB-ANNS
     Indication: GLIOBLASTOMA
     Dosage: 630 MILLIGRAM
     Route: 065
     Dates: start: 20201209

REACTIONS (1)
  - Echocardiogram abnormal [Unknown]
